FAERS Safety Report 4622299-9 (Version None)
Quarter: 2005Q1

REPORT INFORMATION
  Report Type: 
  Country: None (occurrence: None)
  Receive Date: 20050328
  Receipt Date: 20050315
  Transmission Date: 20050727
  Serious: Yes (Other)
  Sender: FDA-Public Use
  Company Number: 2005018856

PATIENT
  Age: 40 Year
  Sex: Female
  Weight: 51 kg

DRUGS (4)
  1. ZOLOFT [Suspect]
     Indication: PREMENSTRUAL SYNDROME
     Dosage: 50 MG (1 IN 1 D) ORAL
     Route: 048
  2. FAMCICLOVIR [Concomitant]
  3. GABAPENTIN [Concomitant]
  4. CEPHALEXIN MONOHYDRATE [Concomitant]

REACTIONS (2)
  - BREAST MASS [None]
  - BREAST PAIN [None]
